FAERS Safety Report 9471495 (Version 3)
Quarter: 2016Q1

REPORT INFORMATION
  Report Type: Spontaneous
  Country: US (occurrence: US)
  Receive Date: 20130822
  Receipt Date: 20160331
  Transmission Date: 20160526
  Serious: Yes (Other)
  Sender: FDA-Public Use
  Company Number: US-PFIZER INC-2013240974

PATIENT
  Sex: Male

DRUGS (1)
  1. VIAGRA [Suspect]
     Active Substance: SILDENAFIL CITRATE
     Dosage: 50 MG (CUTTING 100 MG INTO HALF), UNK

REACTIONS (3)
  - Ejaculation failure [Recovered/Resolved]
  - Chest pain [Unknown]
  - Ejaculation disorder [Unknown]
